FAERS Safety Report 8283049-0 (Version None)
Quarter: 2012Q2

REPORT INFORMATION
  Report Type: 
  Country: None (occurrence: None)
  Receive Date: 20120413
  Receipt Date: 20120329
  Transmission Date: 20120825
  Serious: Yes (Hospitalization)
  Sender: FDA-Public Use
  Company Number: US-ROCHE-1054894

PATIENT
  Age: 61 Year
  Sex: Female
  Weight: 63.6 kg

DRUGS (5)
  1. PACLITAXEL [Suspect]
     Indication: NEOPLASM MALIGNANT
     Dosage: OVER 3 HRS ON DAY 1, TOTAL DOSE 131 MG,LAST DOSE PRIOR TO SAE 60 JAN 2012
     Route: 033
     Dates: start: 20110915
  2. AVASTIN [Suspect]
     Indication: NEOPLASM MALIGNANT
     Dosage: 15 MG/KG,TOTAL DOSE 954 MG, OVER 30-90 MIN ON DAY 1, BEGINNING WITH CYCLE 2 . LAST DOSE PRIOR TO SAE
     Route: 042
     Dates: start: 20110915
  3. AVASTIN [Suspect]
     Dosage: OVER 30-90 MIN ON DAY 1, BEGINNING WITH CYCLE 2.
     Route: 042
  4. PACLITAXEL [Suspect]
     Dosage: ON DAY 8.
  5. CISPLATIN [Suspect]
     Indication: NEOPLASM MALIGNANT
     Dosage: ON DAY 2, TOTAL DOSE 339 MG, LAST DOSE PRIOR TO SAE 29 DEC 2011
     Route: 033
     Dates: start: 20110915

REACTIONS (15)
  - NAUSEA [None]
  - PHOTOPHOBIA [None]
  - HYPOXIA [None]
  - TINNITUS [None]
  - COUGH [None]
  - PLATELET COUNT DECREASED [None]
  - ALKALOSIS [None]
  - VOMITING [None]
  - DYSPNOEA [None]
  - HEADACHE [None]
  - SINUS TACHYCARDIA [None]
  - HYPOPHOSPHATAEMIA [None]
  - NEUTROPHIL COUNT DECREASED [None]
  - DIARRHOEA [None]
  - ANAEMIA [None]
